FAERS Safety Report 9194351 (Version 1)
Quarter: 2013Q1

REPORT INFORMATION
  Report Type: Report from Study
  Country: US (occurrence: US)
  Receive Date: 20130327
  Receipt Date: 20130327
  Transmission Date: 20140127
  Serious: Yes (Hospitalization)
  Sender: FDA-Public Use
  Company Number: US-RB-021424-09

PATIENT
  Sex: Female

DRUGS (2)
  1. SUBOXONE TABLET [Suspect]
     Indication: DRUG DEPENDENCE
     Route: 065
  2. SUBOXONE TABLET [Suspect]
     Route: 065

REACTIONS (9)
  - Drug dependence [Not Recovered/Not Resolved]
  - Drug detoxification [Recovered/Resolved]
  - Pain in extremity [Recovered/Resolved]
  - Hyperhidrosis [Recovered/Resolved]
  - Nausea [Not Recovered/Not Resolved]
  - Feeling of body temperature change [Recovered/Resolved]
  - Muscle twitching [Recovered/Resolved]
  - Burning sensation [Recovered/Resolved]
  - Drug withdrawal syndrome [Recovered/Resolved]
